FAERS Safety Report 7234071-4 (Version None)
Quarter: 2011Q1

REPORT INFORMATION
  Report Type: 
  Country: None (occurrence: None)
  Receive Date: 20110119
  Receipt Date: 20110117
  Transmission Date: 20110831
  Serious: Yes (Other)
  Sender: FDA-Public Use
  Company Number: FR-ABBOTT-11P-056-0697731-00

PATIENT
  Sex: Male

DRUGS (3)
  1. DARUNAVIR [Suspect]
     Indication: PRODUCT USED FOR UNKNOWN INDICATION
     Dates: start: 20100803, end: 20100810
  2. ETRAVIRINE [Suspect]
     Indication: PRODUCT USED FOR UNKNOWN INDICATION
     Dosage: DAILY
     Route: 048
     Dates: start: 20100803, end: 20100810
  3. NORVIR [Suspect]
     Indication: HIV INFECTION
     Route: 048
     Dates: start: 20100803, end: 20100810

REACTIONS (5)
  - DECREASED APPETITE [None]
  - PYREXIA [None]
  - MYALGIA [None]
  - NAUSEA [None]
  - ASTHENIA [None]
